FAERS Safety Report 5404655-4 (Version None)
Quarter: 2007Q3

REPORT INFORMATION
  Report Type: 
  Country: None (occurrence: None)
  Receive Date: 20070802
  Receipt Date: 20070724
  Transmission Date: 20080115
  Serious: Yes (Other)
  Sender: FDA-Public Use
  Company Number: US-GENENTECH-245091

PATIENT
  Sex: Female

DRUGS (4)
  1. AVASTIN [Suspect]
     Indication: COLORECTAL CANCER METASTATIC
  2. FOLINIC ACID [Suspect]
     Indication: COLORECTAL CANCER METASTATIC
  3. 5FU [Suspect]
     Indication: COLORECTAL CANCER METASTATIC
  4. IRINOTECAN HCL [Suspect]
     Indication: COLORECTAL CANCER METASTATIC

REACTIONS (1)
  - SMALL INTESTINAL OBSTRUCTION [None]
